FAERS Safety Report 17760092 (Version 1)
Quarter: 2020Q2

REPORT INFORMATION
  Report Type: Spontaneous
  Country: US (occurrence: US)
  Receive Date: 20200507
  Receipt Date: 20200507
  Transmission Date: 20200714
  Serious: Yes (Hospitalization)
  Sender: FDA-Public Use
  Company Number: None

PATIENT
  Age: 49 Year
  Sex: Female

DRUGS (22)
  1. METAXALONE. [Concomitant]
     Active Substance: METAXALONE
  2. METHOTREXATE. [Concomitant]
     Active Substance: METHOTREXATE
  3. XELJANZ [Concomitant]
     Active Substance: TOFACITINIB CITRATE
  4. DICLOFENAC [Concomitant]
     Active Substance: DICLOFENAC
  5. CIPROFLOXACIN. [Concomitant]
     Active Substance: CIPROFLOXACIN
  6. ONDANSETRON [Concomitant]
     Active Substance: ONDANSETRON
  7. SULINDAC. [Concomitant]
     Active Substance: SULINDAC
  8. CYANOCOBALAM [Concomitant]
     Active Substance: CYANOCOBALAMIN
  9. DULOXETINE. [Concomitant]
     Active Substance: DULOXETINE
  10. CELECOXIB. [Concomitant]
     Active Substance: CELECOXIB
  11. METFORMIN [Concomitant]
     Active Substance: METFORMIN HYDROCHLORIDE
  12. METHYLPRED [Concomitant]
     Active Substance: METHYLPREDNISOLONE
  13. SUCRALFATE. [Concomitant]
     Active Substance: SUCRALFATE
  14. TRAMADOL HCL [Concomitant]
     Active Substance: TRAMADOL HYDROCHLORIDE
  15. VALSART/HCTZ [Concomitant]
  16. ACTEMRA [Suspect]
     Active Substance: TOCILIZUMAB
     Dosage: ?          OTHER DOSE:1 SYR;?
     Route: 058
     Dates: start: 20200331
  17. FOLIC ACID. [Concomitant]
     Active Substance: FOLIC ACID
  18. MONTELUKAST [Concomitant]
     Active Substance: MONTELUKAST SODIUM
  19. BISOPROL FUM [Concomitant]
     Active Substance: BISOPROLOL FUMARATE
  20. GABAPENTIN. [Suspect]
     Active Substance: GABAPENTIN
  21. OXYBUTYNIN. [Concomitant]
     Active Substance: OXYBUTYNIN CHLORIDE
  22. ROSUVASTATIN. [Concomitant]
     Active Substance: ROSUVASTATIN

REACTIONS (2)
  - Intentional dose omission [None]
  - Surgery [None]

NARRATIVE: CASE EVENT DATE: 20200507
